FAERS Safety Report 11659997 (Version 1)
Quarter: 2015Q4

REPORT INFORMATION
  Report Type: Spontaneous
  Country: US (occurrence: None)
  Receive Date: 20151023
  Receipt Date: 20151023
  Transmission Date: 20160304
  Serious: Yes (Other)
  Sender: FDA-Public Use
  Company Number: None

PATIENT
  Age: 50 Year
  Sex: Female

DRUGS (3)
  1. VALTREX [Concomitant]
     Active Substance: VALACYCLOVIR HYDROCHLORIDE
  2. PAROXETINE [Suspect]
     Active Substance: PAROXETINE\PAROXETINE HYDROCHLORIDE
     Indication: PRODUCT USED FOR UNKNOWN INDICATION
     Dosage: 2 PILLS
     Route: 048
     Dates: start: 20151018, end: 20151019
  3. MINIVELLE [Concomitant]
     Active Substance: ESTRADIOL

REACTIONS (7)
  - Product quality issue [None]
  - Nausea [None]
  - Product taste abnormal [None]
  - Muscle spasms [None]
  - Dyspepsia [None]
  - Headache [None]
  - Faeces soft [None]

NARRATIVE: CASE EVENT DATE: 20151018
